FAERS Safety Report 8504701-5 (Version None)
Quarter: 2012Q3

REPORT INFORMATION
  Report Type: 
  Country: None (occurrence: None)
  Receive Date: 20120711
  Receipt Date: 20120627
  Transmission Date: 20120928
  Serious: Yes (Congenital Anomaly)
  Sender: FDA-Public Use
  Company Number: GB-ROCHE-1084706

PATIENT

DRUGS (1)
  1. ISOTRETINOIN [Suspect]
     Indication: ACNE
     Dates: start: 20111213, end: 20111201

REACTIONS (2)
  - CONGENITAL ANOMALY [None]
  - MATERNAL EXPOSURE TIMING UNSPECIFIED [None]
